FAERS Safety Report 9842062 (Version 2)
Quarter: 2014Q1

REPORT INFORMATION
  Report Type: Report from Study
  Country: US (occurrence: US)
  Receive Date: 20140124
  Receipt Date: 20140212
  Transmission Date: 20141002
  Serious: Yes (Death, Other)
  Sender: FDA-Public Use
  Company Number: US-BRISTOL-MYERS SQUIBB COMPANY-20044764

PATIENT
  Sex: Female

DRUGS (3)
  1. REYATAZ [Suspect]
     Dosage: 400MG/DAY
     Route: 064
  2. EPZICOM [Suspect]
     Dosage: 1 DF: 1 TABS/CAPS
     Route: 064
  3. RETROVIR [Suspect]
     Dosage: 600MG/DAY
     Route: 064
     Dates: start: 20131101, end: 20131223

REACTIONS (2)
  - Stillbirth [Fatal]
  - Ventricular septal defect [Unknown]
